FAERS Safety Report 5151016-1 (Version None)
Quarter: 2006Q4

REPORT INFORMATION
  Report Type: 
  Country: None (occurrence: None)
  Receive Date: 20061113
  Receipt Date: 20061113
  Transmission Date: 20070319
  Serious: Yes (Other)
  Sender: FDA-Public Use
  Company Number: None

PATIENT
  Age: 18 Year
  Sex: Female
  Weight: 65.7716 kg

DRUGS (4)
  1. QUASENSE [Suspect]
     Indication: HAEMORRHAGE
     Dosage: ORALLY DAILY
     Route: 048
     Dates: start: 20060801, end: 20061007
  2. ADVAIR DISKUS 100/50 [Concomitant]
  3. SINGULAIR [Concomitant]
  4. ALBUTEROL [Concomitant]

REACTIONS (1)
  - VAGINAL HAEMORRHAGE [None]
